FAERS Safety Report 12785621 (Version 1)
Quarter: 2016Q3

REPORT INFORMATION
  Report Type: Spontaneous
  Country: CA (occurrence: US)
  Receive Date: 20160927
  Receipt Date: 20160927
  Transmission Date: 20161109
  Serious: No
  Sender: FDA-Public Use
  Company Number: CA-FRI-1000079440

PATIENT
  Sex: Male

DRUGS (1)
  1. LINACLOTIDE UNK [Suspect]
     Active Substance: LINACLOTIDE
     Dosage: 290 ?G, QD

REACTIONS (3)
  - Diarrhoea [Unknown]
  - Constipation [Unknown]
  - Flatulence [Unknown]
